FAERS Safety Report 5282964-X (Version None)
Quarter: 2007Q1

REPORT INFORMATION
  Report Type: 
  Country: None (occurrence: None)
  Receive Date: 20070328
  Receipt Date: 20070328
  Transmission Date: 20070707
  Serious: Yes (Other)
  Sender: FDA-Public Use
  Company Number: None

PATIENT
  Age: 69 Year
  Sex: Male
  Weight: 89.8 kg

DRUGS (13)
  1. AZITHROMYCIN [Suspect]
  2. METHOTREXATE NA [Concomitant]
  3. RISPERDAL [Concomitant]
  4. MOMETASONE FUROATE [Concomitant]
  5. NITROGLYCERIN [Concomitant]
  6. FORMOTEROL FUMARATE [Concomitant]
  7. TIOTROPIUM [Concomitant]
  8. ACETAMINOPHEN AND HYDROCODONE BITARTRATE [Concomitant]
  9. LORAZEPAM [Concomitant]
  10. PAROXETINE HCL [Concomitant]
  11. SIMVASTATIN [Concomitant]
  12. LEVALBUTEROL TART [Concomitant]
  13. VERAPAMIL HCL [Concomitant]

REACTIONS (1)
  - ABDOMINAL PAIN [None]
